FAERS Safety Report 4390239-6 (Version None)
Quarter: 2004Q3

REPORT INFORMATION
  Report Type: 
  Country: None (occurrence: None)
  Receive Date: 20040706
  Receipt Date: 20040603
  Transmission Date: 20050211
  Serious: Yes (Hospitalization)
  Sender: FDA-Public Use
  Company Number: JP-ROCHE-369783

PATIENT
  Age: 39 Year
  Sex: Female
  Weight: 60.5 kg

DRUGS (5)
  1. PANALDINE [Suspect]
     Indication: SCLERODERMA
     Route: 048
     Dates: start: 20040513, end: 20040520
  2. MEDROL [Concomitant]
     Indication: MIXED CONNECTIVE TISSUE DISEASE
     Route: 048
     Dates: start: 20020119
  3. BREDININ [Concomitant]
     Indication: MIXED CONNECTIVE TISSUE DISEASE
     Route: 048
     Dates: start: 20020605
  4. BONALON [Concomitant]
     Indication: OSTEOPOROSIS
     Route: 048
     Dates: start: 20020605
  5. NAUZELIN [Concomitant]
     Indication: DYSPHAGIA
     Route: 048
     Dates: start: 20040122

REACTIONS (3)
  - DRUG ERUPTION [None]
  - EXANTHEM [None]
  - PYREXIA [None]
